FAERS Safety Report 8576413-3 (Version None)
Quarter: 2012Q3

REPORT INFORMATION
  Report Type: 
  Country: None (occurrence: None)
  Receive Date: 20120807
  Receipt Date: 20120727
  Transmission Date: 20120928
  Serious: Yes (Hospitalization, Disabling, Other)
  Sender: FDA-Public Use
  Company Number: US-009507513-1205USA04407

PATIENT

DRUGS (5)
  1. PRILOSEC [Concomitant]
     Dosage: UNK
     Dates: start: 20010101
  2. FOSAMAX [Suspect]
     Dosage: 70 MG, UNK
     Route: 048
     Dates: start: 20080502, end: 20080814
  3. FOSAMAX [Suspect]
     Indication: OSTEOPENIA
     Dosage: 70 MG, UNK
     Route: 048
     Dates: start: 20010202, end: 20080502
  4. BONIVA [Suspect]
     Indication: OSTEOPENIA
     Dosage: 150 MG, UNK
     Route: 048
     Dates: start: 20080814, end: 20100315
  5. LUVOX [Concomitant]
     Indication: ANXIETY
     Dosage: UNK
     Dates: start: 19860101

REACTIONS (9)
  - GASTROOESOPHAGEAL REFLUX DISEASE [None]
  - BLOOD CHOLESTEROL INCREASED [None]
  - STRESS FRACTURE [None]
  - OSTEOPOROSIS [None]
  - FEMUR FRACTURE [None]
  - LOW TURNOVER OSTEOPATHY [None]
  - DENTAL PROSTHESIS USER [None]
  - ENDODONTIC PROCEDURE [None]
  - DENTURE WEARER [None]
